FAERS Safety Report 5618729-6 (Version None)
Quarter: 2008Q1

REPORT INFORMATION
  Report Type: 
  Country: None (occurrence: None)
  Receive Date: 20080207
  Receipt Date: 20080130
  Transmission Date: 20080703
  Serious: Yes (Death, Life-Threatening, Hospitalization, Disabling)
  Sender: FDA-Public Use
  Company Number: PL-BAYER-PL-2007-035686

PATIENT
  Age: 64 Year
  Sex: Male

DRUGS (5)
  1. FLUDARABINE PHOSPHATE [Suspect]
     Indication: CHRONIC LYMPHOCYTIC LEUKAEMIA
     Dates: start: 20070622
  2. FLUDARABINE PHOSPHATE [Suspect]
     Dates: start: 20070720
  3. CYCLOPHOSPHAMIDE [Suspect]
     Indication: CHRONIC LYMPHOCYTIC LEUKAEMIA
     Dates: start: 20070622
  4. CYCLOPHOSPHAMIDE [Suspect]
     Dates: start: 20070720
  5. CAMPATH [Suspect]
     Indication: CHRONIC LYMPHOCYTIC LEUKAEMIA
     Dates: end: 20070501

REACTIONS (9)
  - CARDIOVASCULAR INSUFFICIENCY [None]
  - LUNG INFECTION [None]
  - LYMPHADENOPATHY [None]
  - OPPORTUNISTIC INFECTION [None]
  - PANCYTOPENIA [None]
  - PYREXIA [None]
  - RESPIRATORY FAILURE [None]
  - TUBERCULOSIS TEST POSITIVE [None]
  - URINARY TRACT INFECTION [None]
